FAERS Safety Report 9457394 (Version 1)
Quarter: 2013Q3

REPORT INFORMATION
  Report Type: Spontaneous
  Country: GR (occurrence: None)
  Receive Date: 20130812
  Receipt Date: 20130812
  Transmission Date: 20140515
  Serious: No
  Sender: FDA-Public Use
  Company Number: B0914106A

PATIENT
  Sex: 0

DRUGS (2)
  1. TOPOTECAN [Suspect]
     Indication: SMALL CELL LUNG CANCER
     Dosage: CYCLIC
     Route: 048
  2. ONDANSETRON HYDROCHLORIDE [Concomitant]

REACTIONS (1)
  - Lower respiratory tract infection [None]
